FAERS Safety Report 5903571-9 (Version None)
Quarter: 2008Q3

REPORT INFORMATION
  Report Type: 
  Country: None (occurrence: None)
  Receive Date: 20080930
  Receipt Date: 20080918
  Transmission Date: 20090109
  Serious: Yes (Hospitalization)
  Sender: FDA-Public Use
  Company Number: CA-PFIZER INC-2008056223

PATIENT
  Sex: Male
  Weight: 118 kg

DRUGS (27)
  1. SU-011,248 [Suspect]
     Indication: METASTATIC RENAL CELL CARCINOMA
     Route: 048
     Dates: start: 20080602
  2. PLAVIX [Concomitant]
     Route: 048
     Dates: start: 20070601
  3. LIPITOR [Concomitant]
     Route: 048
     Dates: start: 20070601
  4. ASPIRIN [Concomitant]
     Route: 048
     Dates: start: 20070601
  5. SYMBICORT [Concomitant]
     Route: 055
     Dates: start: 20080530
  6. VENTOLIN [Concomitant]
     Route: 055
     Dates: start: 19970601
  7. VALSARTAN [Concomitant]
     Route: 048
  8. ALPHAGAN [Concomitant]
     Route: 047
     Dates: start: 20050601
  9. TRAVATAN [Concomitant]
     Route: 047
     Dates: start: 20050601
  10. MORPHINE [Concomitant]
     Route: 048
     Dates: start: 20080605
  11. NITROGLYCERIN [Concomitant]
     Route: 055
     Dates: start: 20070601
  12. RAMIPRIL [Concomitant]
     Route: 048
     Dates: start: 20070601
  13. ENOXAPARIN SODIUM [Concomitant]
     Route: 058
     Dates: start: 20080718
  14. LACTULOSE [Concomitant]
     Route: 048
     Dates: start: 20080718
  15. DOCUSATE SODIUM [Concomitant]
     Route: 048
     Dates: start: 20080717
  16. RABEPRAZOLE SODIUM [Concomitant]
     Route: 048
     Dates: start: 20080707
  17. SENNOSIDES [Concomitant]
     Route: 048
     Dates: start: 20080717
  18. MICROLAX [Concomitant]
     Route: 054
     Dates: start: 20080717
  19. ALL OTHER THERAPEUTIC PRODUCTS [Concomitant]
     Route: 048
     Dates: start: 20080717
  20. FENTANYL [Concomitant]
     Dates: start: 20080718
  21. ACETAMINOPHEN [Concomitant]
     Route: 048
     Dates: start: 20080718
  22. MORPHINE SULFATE INJ [Concomitant]
     Route: 048
     Dates: start: 20080718
  23. OXAZEPAM [Concomitant]
     Route: 048
     Dates: start: 20080717
  24. OXYCOCET [Concomitant]
     Route: 048
     Dates: start: 20080718
  25. PROCHLORPERAZINE [Concomitant]
     Route: 048
     Dates: start: 20080717
  26. NOROXIN [Concomitant]
     Route: 048
     Dates: start: 20080719, end: 20080727
  27. NOROXIN [Concomitant]
     Route: 048
     Dates: start: 20080801, end: 20080807

REACTIONS (10)
  - ANOREXIA [None]
  - BLOOD PRESSURE DECREASED [None]
  - DIARRHOEA [None]
  - DISEASE PROGRESSION [None]
  - DYSGEUSIA [None]
  - MUCOSAL INFLAMMATION [None]
  - NAUSEA [None]
  - PLEURAL EFFUSION [None]
  - PULMONARY EMBOLISM [None]
  - VOMITING [None]
